FAERS Safety Report 16106433 (Version 2)
Quarter: 2019Q1

REPORT INFORMATION
  Report Type: Report from Study
  Country: ES (occurrence: ES)
  Receive Date: 20190322
  Receipt Date: 20190326
  Transmission Date: 20190418
  Serious: Yes (Death, Hospitalization)
  Sender: FDA-Public Use
  Company Number: ES-SA-2019SA075548

PATIENT
  Age: 71 Year
  Sex: Female
  Weight: 56.1 kg

DRUGS (24)
  1. FLUOROURACIL. [Suspect]
     Active Substance: FLUOROURACIL
     Indication: COLORECTAL CANCER METASTATIC
     Dosage: 2600 MG, QOW
     Route: 042
     Dates: start: 20190220, end: 20190220
  2. MEGESTROL [Concomitant]
     Active Substance: MEGESTROL
     Dosage: 480 MG, QD
     Route: 048
     Dates: start: 20190314, end: 20190319
  3. FOLINIC ACID [Suspect]
     Active Substance: LEUCOVORIN
     Indication: COLORECTAL CANCER METASTATIC
     Dosage: 330 MG, QOW
     Route: 042
     Dates: start: 20190220, end: 20190220
  4. IRINOTECAN [Suspect]
     Active Substance: IRINOTECAN
     Indication: COLORECTAL CANCER METASTATIC
     Dosage: 200 MG, QOW
     Route: 042
     Dates: start: 20190220, end: 20190220
  5. METFORMINA [METFORMIN] [Concomitant]
     Indication: DIABETES MELLITUS
     Dosage: 850 MG, QD
     Route: 048
     Dates: start: 20190314, end: 20190319
  6. CITALOPRAM [Concomitant]
     Active Substance: CITALOPRAM HYDROBROMIDE
     Indication: DEPRESSION
     Dosage: 20 MG, QD
     Route: 048
     Dates: start: 20190314, end: 20190319
  7. DEXKETOPROFEN [Concomitant]
     Active Substance: DEXKETOPROFEN
     Indication: PAIN
     Dosage: 75 MG, QD
     Route: 048
     Dates: start: 20190314, end: 20190319
  8. FOLINIC ACID [Suspect]
     Active Substance: LEUCOVORIN
     Dosage: 330 MG, QOW
     Route: 042
     Dates: start: 20190109, end: 20190109
  9. AFLIBERCEPT [Suspect]
     Active Substance: AFLIBERCEPT
     Dosage: 250 MG, QOW
     Route: 042
     Dates: start: 20190109, end: 20190109
  10. IRINOTECAN [Suspect]
     Active Substance: IRINOTECAN
     Dosage: 200 MG, QOW
     Route: 042
     Dates: start: 20190109, end: 20190109
  11. VILDAGLIPTINA [Concomitant]
     Indication: DIABETES MELLITUS
     Dosage: 50 MG, QD
     Route: 048
     Dates: start: 20190314, end: 20190319
  12. OMEPRAZOLE. [Concomitant]
     Active Substance: OMEPRAZOLE
     Indication: GASTROINTESTINAL DISORDER PROPHYLAXIS
     Dosage: 20 MG, QD
     Route: 048
     Dates: start: 20190314, end: 20190319
  13. ZOLPIDEM [Concomitant]
     Active Substance: ZOLPIDEM\ZOLPIDEM TARTRATE
     Indication: DEPRESSION
     Dosage: 10 MG, QD
     Route: 048
     Dates: start: 20190314, end: 20190319
  14. AFLIBERCEPT [Suspect]
     Active Substance: AFLIBERCEPT
     Indication: COLORECTAL CANCER METASTATIC
     Dosage: 250 MG, QOW
     Route: 042
     Dates: start: 20190220, end: 20190220
  15. PARACETAMOL [Concomitant]
     Active Substance: ACETAMINOPHEN
     Indication: PAIN
     Dosage: 3 G, QD
     Route: 048
     Dates: start: 20190314, end: 20190319
  16. DEXAMETHASONE. [Concomitant]
     Active Substance: DEXAMETHASONE
     Dosage: 4 MG, QD
     Route: 048
     Dates: start: 20190314, end: 20190319
  17. LACTULOSE. [Concomitant]
     Active Substance: LACTULOSE
     Indication: CONSTIPATION
     Dosage: 10 G, QD
     Route: 048
     Dates: start: 20190314, end: 20190319
  18. FLUOROURACIL. [Suspect]
     Active Substance: FLUOROURACIL
     Dosage: 2600 MG, QOW
     Route: 042
     Dates: start: 20190109, end: 20190109
  19. FENTANIL [Concomitant]
     Active Substance: FENTANYL
     Indication: PAIN
     Dosage: 50 (UNIT UNKNOWN)
     Dates: start: 20190314, end: 20190319
  20. LATANOPROST. [Concomitant]
     Active Substance: LATANOPROST
     Indication: GLAUCOMA
     Dosage: UNK
     Dates: start: 20190314, end: 20190319
  21. FLUOROURACIL. [Suspect]
     Active Substance: FLUOROURACIL
     Dosage: 330 MG, QOW
     Route: 040
     Dates: start: 20190109, end: 20190109
  22. FLUOROURACIL. [Suspect]
     Active Substance: FLUOROURACIL
     Dosage: 330 MG, QOW
     Route: 040
     Dates: start: 20190220, end: 20190220
  23. CANDESARTAN. [Concomitant]
     Active Substance: CANDESARTAN
     Indication: HYPERTENSION
     Dosage: 32 MG, QD
     Route: 048
     Dates: start: 20190314, end: 20190319
  24. CARVEDILOL. [Concomitant]
     Active Substance: CARVEDILOL
     Indication: HYPERTENSION
     Dosage: 25 MG, QD
     Route: 048
     Dates: start: 20190314, end: 20190319

REACTIONS (1)
  - Intestinal perforation [Fatal]

NARRATIVE: CASE EVENT DATE: 20190317
